FAERS Safety Report 9181381 (Version 2)
Quarter: 2013Q2

REPORT INFORMATION
  Report Type: Spontaneous
  Country: US (occurrence: US)
  Receive Date: 20130322
  Receipt Date: 20130529
  Transmission Date: 20140414
  Serious: Yes (Other)
  Sender: FDA-Public Use
  Company Number: US-PFIZER INC-2013093020

PATIENT
  Age: 54 Year
  Sex: Female

DRUGS (7)
  1. CHANTIX [Suspect]
     Indication: SMOKING CESSATION THERAPY
     Dosage: CHANTIX PACK, 1MG
     Dates: start: 20070728, end: 20071101
  2. CHANTIX [Suspect]
     Dosage: 1 MG, UNK
     Dates: start: 20070919
  3. PRILOSEC [Concomitant]
     Dosage: 20 MG, 1X/DAY
     Route: 048
  4. ATIVAN [Concomitant]
     Dosage: 0.5 MG, AS NEEDED
     Route: 048
  5. MAALOX [Concomitant]
     Dosage: 30 ML, AS NEEDED
     Route: 048
  6. PEPTO-BISMOL [Concomitant]
     Dosage: 252 MG, AS NEEDED
     Route: 048
  7. PROZAC [Concomitant]
     Dosage: 10 MG, 1X/DAY
     Route: 048
     Dates: start: 200801

REACTIONS (1)
  - Suicidal ideation [Unknown]
